FAERS Safety Report 8030225-8 (Version None)
Quarter: 2012Q1

REPORT INFORMATION
  Report Type: 
  Country: None (occurrence: None)
  Receive Date: 20120109
  Receipt Date: 20120103
  Transmission Date: 20120608
  Serious: Yes (Other)
  Sender: FDA-Public Use
  Company Number: PHHY2011CA92349

PATIENT
  Sex: Male

DRUGS (6)
  1. TETRACYCLINE [Concomitant]
  2. ZANTAC [Concomitant]
  3. LIPITOR [Concomitant]
  4. ZOLEDRONOC ACID [Suspect]
     Indication: OSTEITIS DEFORMANS
     Dosage: 5 MG,
     Route: 042
     Dates: start: 20101101
  5. PLAVIX [Concomitant]
  6. VITAMIN D [Concomitant]

REACTIONS (3)
  - URINARY BLADDER HAEMORRHAGE [None]
  - MALAISE [None]
  - URINARY TRACT INFECTION [None]
